FAERS Safety Report 5680698-0 (Version None)
Quarter: 2008Q1

REPORT INFORMATION
  Report Type: 
  Country: None (occurrence: None)
  Receive Date: 20080326
  Receipt Date: 20080228
  Transmission Date: 20080703
  Serious: No
  Sender: FDA-Public Use
  Company Number: US-BAUSCH-2008BL000886

PATIENT
  Age: 55 Year
  Sex: Female

DRUGS (1)
  1. ALAWAY [Suspect]
     Indication: EYE PRURITUS
     Route: 047
     Dates: start: 20080228, end: 20080228

REACTIONS (2)
  - MEDICATION ERROR [None]
  - OCULAR HYPERAEMIA [None]
